FAERS Safety Report 5401528-8 (Version None)
Quarter: 2007Q3

REPORT INFORMATION
  Report Type: 
  Country: None (occurrence: None)
  Receive Date: 20070731
  Receipt Date: 20070720
  Transmission Date: 20080115
  Serious: Yes (Other)
  Sender: FDA-Public Use
  Company Number: ZA-ROCHE-508058

PATIENT
  Age: 48 Year
  Sex: Female

DRUGS (4)
  1. PEGASYS [Suspect]
     Indication: HEPATITIS C VIRUS
     Route: 065
     Dates: start: 20061103, end: 20070720
  2. COPEGUS [Concomitant]
     Indication: HEPATITIS C VIRUS
     Dates: start: 20061103, end: 20070720
  3. CAPTOPRIL [Concomitant]
     Indication: HYPERTENSION
  4. HYDROCHLOROTHIAZIDE [Concomitant]
     Indication: HYPERTENSION

REACTIONS (1)
  - GRAND MAL CONVULSION [None]
